FAERS Safety Report 5471716-3 (Version None)
Quarter: 2007Q3

REPORT INFORMATION
  Report Type: 
  Country: None (occurrence: None)
  Receive Date: 20070928
  Receipt Date: 20070417
  Transmission Date: 20080115
  Serious: No
  Sender: FDA-Public Use
  Company Number: US-BRISTOL-MYERS SQUIBB COMPANY-13749999

PATIENT
  Sex: Female
  Weight: 52 kg

DRUGS (2)
  1. DEFINITY [Suspect]
  2. PRENATAL VITAMINS [Concomitant]

REACTIONS (2)
  - ACCIDENTAL EXPOSURE [None]
  - EYE IRRITATION [None]
